FAERS Safety Report 9511462 (Version 1)
Quarter: 2013Q3

REPORT INFORMATION
  Report Type: Spontaneous
  Country: US (occurrence: None)
  Receive Date: 20130909
  Receipt Date: 20130909
  Transmission Date: 20140515
  Serious: Yes (Life-Threatening, Hospitalization)
  Sender: FDA-Public Use
  Company Number: None

PATIENT
  Age: 42 Year
  Sex: Male
  Weight: 200 kg

DRUGS (7)
  1. NEURONTIN [Suspect]
     Indication: NEOPLASM MALIGNANT
     Route: 048
     Dates: start: 20120601, end: 20121024
  2. NEURONTIN [Suspect]
     Indication: PAIN
     Route: 048
     Dates: start: 20120601, end: 20121024
  3. ZYPREX [Concomitant]
  4. CYMBALTA [Concomitant]
  5. CELEBREX [Concomitant]
  6. LORTAB [Concomitant]
  7. VITAMIN B [Concomitant]

REACTIONS (1)
  - Suicide attempt [None]
